FAERS Safety Report 8089539-8 (Version None)
Quarter: 2012Q1

REPORT INFORMATION
  Report Type: 
  Country: None (occurrence: None)
  Receive Date: 20120128
  Receipt Date: 20110616
  Transmission Date: 20120608
  Serious: No
  Sender: FDA-Public Use
  Company Number: US-ABBOTT-11P-163-0733196-00

PATIENT
  Age: 42 Year
  Sex: Male

DRUGS (4)
  1. LEVOTHYROXINE SODIUM [Concomitant]
     Indication: THYROID DISORDER
     Dosage: 150 MICROGRAMS DAILY
  2. LEVOTHYROXINE SODIUM [Concomitant]
     Indication: PARATHYROID DISORDER
  3. HUMIRA [Suspect]
     Indication: ANKYLOSING SPONDYLITIS
     Dates: start: 20110505
  4. OMEPRAZOLE [Concomitant]
     Indication: GASTROOESOPHAGEAL REFLUX DISEASE
     Dosage: 20 MG DAILY

REACTIONS (1)
  - HERPES VIRUS INFECTION [None]
